FAERS Safety Report 10150660 (Version 1)
Quarter: 2014Q2

REPORT INFORMATION
  Report Type: Spontaneous
  Country: CA (occurrence: CA)
  Receive Date: 20140502
  Receipt Date: 20140502
  Transmission Date: 20141212
  Serious: Yes (Hospitalization)
  Sender: FDA-Public Use
  Company Number: PHHY2014CA051307

PATIENT
  Age: 20 Year
  Sex: Female

DRUGS (6)
  1. PARACETAMOL [Suspect]
     Dosage: 60 G
  2. IBUPROFEN [Suspect]
     Dosage: 32 G
  3. CHLORPHENIRAMINE [Suspect]
     Dosage: 144 MG
  4. PSEUDOEPHEDRINE [Suspect]
     Dosage: 2.2 G
  5. CITALOPRAM [Concomitant]
     Dosage: 20 MG, BID
  6. CONTRACEPTIVES [Concomitant]
     Route: 048

REACTIONS (6)
  - Metabolic acidosis [Unknown]
  - Depressed level of consciousness [Unknown]
  - Unresponsive to stimuli [Unknown]
  - Coma scale abnormal [Unknown]
  - Vomiting [Unknown]
  - Overdose [Unknown]
